FAERS Safety Report 6821827-2 (Version None)
Quarter: 2010Q3

REPORT INFORMATION
  Report Type: 
  Country: None (occurrence: None)
  Receive Date: 20100708
  Receipt Date: 20100629
  Transmission Date: 20110219
  Serious: Yes (Hospitalization)
  Sender: FDA-Public Use
  Company Number: JP-BIOGENIDEC-2009BI029075

PATIENT
  Age: 35 Year
  Sex: Female

DRUGS (4)
  1. AVONEX [Suspect]
     Indication: MULTIPLE SCLEROSIS
     Route: 030
     Dates: start: 20080113, end: 20080702
  2. AVONEX [Suspect]
     Route: 030
     Dates: start: 20090708, end: 20090815
  3. TEGRETOL [Concomitant]
     Dates: start: 20060304
  4. LIORESAL [Concomitant]
     Dates: start: 20060301

REACTIONS (3)
  - CONVULSION [None]
  - EPILEPSY [None]
  - PYREXIA [None]
